FAERS Safety Report 17604440 (Version 1)
Quarter: 2020Q1

REPORT INFORMATION
  Report Type: Spontaneous
  Country: US (occurrence: US)
  Receive Date: 20200331
  Receipt Date: 20200331
  Transmission Date: 20200409
  Serious: Yes (Death)
  Sender: FDA-Public Use
  Company Number: US-AKRON, INC.-2082133

PATIENT
  Age: 38 Year
  Sex: Male

DRUGS (2)
  1. ATROPINE OPHTHALMIC SOLUTION [Suspect]
     Active Substance: ATROPINE
     Route: 047
  2. ATROPINE SULFATE. [Suspect]
     Active Substance: ATROPINE SULFATE
     Route: 047

REACTIONS (1)
  - Death [Fatal]
